FAERS Safety Report 4872725-5 (Version None)
Quarter: 2006Q1

REPORT INFORMATION
  Report Type: 
  Country: None (occurrence: None)
  Receive Date: 20060103
  Receipt Date: 20051219
  Transmission Date: 20060701
  Serious: Yes (Other)
  Sender: FDA-Public Use
  Company Number: USA0510109861

PATIENT
  Age: 72 Year
  Sex: Male

DRUGS (3)
  1. CIALIS [Suspect]
     Indication: ERECTILE DYSFUNCTION
     Dosage: 10 MG, ORAL
     Route: 048
     Dates: start: 20050901, end: 20050101
  2. FLOMAX MR (TAMSULOSIN HYDROCHLORIDE) [Concomitant]
  3. GLUCOSAMINE SULFATE (GLUCOSAMINE SULFATE) [Concomitant]

REACTIONS (12)
  - ASTHENOPIA [None]
  - CATARACT [None]
  - DIPLOPIA [None]
  - EYE IRRITATION [None]
  - EYE PRURITUS [None]
  - HEADACHE [None]
  - NASOPHARYNGITIS [None]
  - PHOTOPHOBIA [None]
  - RETINAL PIGMENT EPITHELIOPATHY [None]
  - TENSION HEADACHE [None]
  - THERAPY NON-RESPONDER [None]
  - VISION BLURRED [None]
